FAERS Safety Report 4817749-9 (Version None)
Quarter: 2005Q3

REPORT INFORMATION
  Report Type: 
  Country: None (occurrence: None)
  Receive Date: 20050929
  Receipt Date: 20050531
  Transmission Date: 20060218
  Serious: No
  Sender: FDA-Public Use
  Company Number: 05P-163-0301944-00

PATIENT
  Age: 75 Year
  Sex: Female
  Weight: 53.5244 kg

DRUGS (1)
  1. HUMIRA [Suspect]
     Indication: RHEUMATOID ARTHRITIS
     Dosage: 40 MG, 1 IN 2 WK, SUBCUTANEOUS
     Route: 058
     Dates: start: 20040101, end: 20050301

REACTIONS (4)
  - ABNORMAL DREAMS [None]
  - ATRIAL FLUTTER [None]
  - DEPRESSION [None]
  - DYSPEPSIA [None]
